FAERS Safety Report 17945382 (Version 4)
Quarter: 2021Q2

REPORT INFORMATION
  Report Type: Spontaneous
  Country: DE (occurrence: DE)
  Receive Date: 20200626
  Receipt Date: 20210414
  Transmission Date: 20210717
  Serious: Yes (Death, Hospitalization)
  Sender: FDA-Public Use
  Company Number: DE-CELLTRION INC.-2020DE023633

PATIENT

DRUGS (12)
  1. IBRUTINIB [Suspect]
     Active Substance: IBRUTINIB
     Indication: DIFFUSE LARGE B-CELL LYMPHOMA
     Dosage: UNK
     Route: 065
  2. CARBOPLATIN. [Suspect]
     Active Substance: CARBOPLATIN
     Indication: DIFFUSE LARGE B-CELL LYMPHOMA
     Dosage: AS PART OF R?DEVIC TREATMENT FOR SEVERAL MONTHS (LAST THERAPY CYCLE WAS ADMINISTERED 2 WEEKS BEFORE
     Route: 065
  3. CARBOPLATIN. [Suspect]
     Active Substance: CARBOPLATIN
     Indication: HYPERTENSION
     Dosage: UNK
  4. PIPERACILLIN AND TAZOBACTAM [Concomitant]
     Active Substance: PIPERACILLIN SODIUM\TAZOBACTAM SODIUM
     Indication: COVID-19
     Route: 065
  5. DEXAMETHASON [Suspect]
     Active Substance: DEXAMETHASONE
     Indication: HYPERTENSION
     Dosage: AS PART OF R?DEVIC TREATMENT (FOR SEVERAL MONTHS), THE LAST DOSE WAS ADMINISTERED 2 WEEKS BEFORE SAR
  6. DEXAMETHASON [Suspect]
     Active Substance: DEXAMETHASONE
     Indication: DIFFUSE LARGE B-CELL LYMPHOMA
     Dosage: AS PART OF R?DEVIC TREATMENT (FOR SEVERAL MONTHS), THE LAST DOSE WAS ADMINISTERED 2 WEEKS BEFORE SAR
     Route: 065
  7. ETOPOSIDE. [Suspect]
     Active Substance: ETOPOSIDE
     Indication: HYPERTENSION
     Dosage: UNK
  8. IFOSFAMIDE. [Suspect]
     Active Substance: IFOSFAMIDE
     Indication: HYPERTENSION
     Dosage: UNK
  9. ETOPOSIDE. [Suspect]
     Active Substance: ETOPOSIDE
     Indication: DIFFUSE LARGE B-CELL LYMPHOMA
     Dosage: PART OF R?DEVIC; LAST CYCLE 2 WKS BEFORE SARS?COV?2 INFECTION
     Route: 065
  10. IFOSFAMIDE. [Suspect]
     Active Substance: IFOSFAMIDE
     Indication: DIFFUSE LARGE B-CELL LYMPHOMA
     Dosage: AS PART OF R?DEVIC TREATMENT FOR SEVERAL MONTHS (LAST THERAPY CYCLE WAS ADMINISTERED 2 WEEKS BEFORE
     Route: 065
  11. RITUXIMAB (UNKNOWN) [Suspect]
     Active Substance: RITUXIMAB
     Indication: DIFFUSE LARGE B-CELL LYMPHOMA
     Dosage: AS PART OF R?DEVIC TREATMENT FOR SEVERAL MONTHS (LAST THERAPY CYCLE WAS ADMINISTERED 2 WEEKS BEFORE
     Route: 065
  12. RITUXIMAB (UNKNOWN) [Suspect]
     Active Substance: RITUXIMAB
     Indication: HYPERTENSION
     Dosage: AS PART OF R?DEVIC TREATMENT FOR SEVERAL MONTHS (LAST THERAPY CYCLE WAS ADMINISTERED 2 WEEKS BEFORE

REACTIONS (6)
  - Severe acute respiratory syndrome [Fatal]
  - Off label use [Unknown]
  - COVID-19 pneumonia [Fatal]
  - Respiratory failure [Fatal]
  - COVID-19 [Fatal]
  - Pyrexia [Fatal]
